FAERS Safety Report 19543221 (Version 1)
Quarter: 2021Q3

REPORT INFORMATION
  Report Type: Spontaneous
  Country: PL (occurrence: PL)
  Receive Date: 20210713
  Receipt Date: 20210713
  Transmission Date: 20211014
  Serious: Yes (Death, Hospitalization, Other)
  Sender: FDA-Public Use
  Company Number: PL-AUROBINDO-AUR-APL-2021-025211

PATIENT
  Age: 43 Year
  Sex: Male

DRUGS (8)
  1. IMIPENEM AND CILASTATIN [Suspect]
     Active Substance: CILASTATIN SODIUM\IMIPENEM
     Indication: PNEUMONIA CYTOMEGALOVIRAL
     Dosage: UNK
     Route: 065
  2. LAMIVUDINE. [Suspect]
     Active Substance: LAMIVUDINE
     Indication: ANTIRETROVIRAL THERAPY
     Dosage: UNK
     Route: 065
  3. RITONAVIR. [Suspect]
     Active Substance: RITONAVIR
     Indication: ANTIRETROVIRAL THERAPY
     Dosage: UNK
     Route: 065
  4. ACICLOVIR [Suspect]
     Active Substance: ACYCLOVIR
     Indication: PNEUMONIA CYTOMEGALOVIRAL
     Dosage: UNK
     Route: 065
  5. TENOFOVIR DISOPROXIL [Suspect]
     Active Substance: TENOFOVIR DISOPROXIL
     Indication: ANTIRETROVIRAL THERAPY
     Dosage: UNK
     Route: 065
  6. COLISTIN [Suspect]
     Active Substance: COLISTIN
     Indication: PNEUMONIA CYTOMEGALOVIRAL
     Dosage: UNK
  7. GANCICLOVIR. [Suspect]
     Active Substance: GANCICLOVIR
     Indication: PNEUMONIA CYTOMEGALOVIRAL
  8. SAQUINAVIR [Suspect]
     Active Substance: SAQUINAVIR
     Indication: ANTIRETROVIRAL THERAPY
     Dosage: UNK
     Route: 065

REACTIONS (23)
  - Facial paralysis [Fatal]
  - Pneumonia bacterial [Fatal]
  - Gait inability [Fatal]
  - Dysphagia [Fatal]
  - Cerebral haemorrhage [Fatal]
  - Bulbar palsy [Fatal]
  - Respiratory failure [Fatal]
  - Drug ineffective [Unknown]
  - Toxoplasmosis [Fatal]
  - Altered state of consciousness [Fatal]
  - Drug resistance [Unknown]
  - Cerebral mass effect [Fatal]
  - Cerebral toxoplasmosis [Fatal]
  - Monoparesis [Fatal]
  - Cytomegalovirus infection [Fatal]
  - Confusional state [Fatal]
  - Lung infiltration [Fatal]
  - Central nervous system lesion [Fatal]
  - Extensor plantar response [Fatal]
  - Aphasia [Fatal]
  - Quadriparesis [Fatal]
  - Therapy cessation [Fatal]
  - Hemiparesis [Fatal]

NARRATIVE: CASE EVENT DATE: 2018
